FAERS Safety Report 12936705 (Version 3)
Quarter: 2017Q1

REPORT INFORMATION
  Report Type: Report from Study
  Country: US (occurrence: US)
  Receive Date: 20161114
  Receipt Date: 20170102
  Transmission Date: 20170428
  Serious: Yes (Hospitalization, Other)
  Sender: FDA-Public Use
  Company Number: US-GILEAD-2016-0242994

PATIENT
  Age: 43 Year
  Sex: Female

DRUGS (22)
  1. GABAPENTIN. [Concomitant]
     Active Substance: GABAPENTIN
  2. PANTOPRAZOLE [Concomitant]
     Active Substance: PANTOPRAZOLE SODIUM
  3. VITAMIN E                          /00110501/ [Concomitant]
     Active Substance: TOCOPHEROL
  4. ALBUTEROL                          /00139501/ [Concomitant]
     Active Substance: ALBUTEROL
  5. SILDENAFIL. [Concomitant]
     Active Substance: SILDENAFIL
  6. ZOLPIDEM [Concomitant]
     Active Substance: ZOLPIDEM\ZOLPIDEM TARTRATE
  7. ATORVASTATIN [Concomitant]
     Active Substance: ATORVASTATIN
  8. BIOTIN [Concomitant]
     Active Substance: BIOTIN
  9. FLONASE                            /00908302/ [Concomitant]
     Active Substance: MOMETASONE FUROATE
  10. FUROSEMIDE. [Concomitant]
     Active Substance: FUROSEMIDE
  11. MULTIVITAMIN                       /00097801/ [Concomitant]
     Active Substance: VITAMINS
  12. AMBRISENTAN [Suspect]
     Active Substance: AMBRISENTAN
     Indication: PRODUCT USED FOR UNKNOWN INDICATION
     Dosage: 10 MG, UNK
     Route: 065
     Dates: start: 20160108
  13. DOCUSATE [Concomitant]
     Active Substance: DOCUSATE
  14. HYDROXYCHLOROQUINE [Concomitant]
     Active Substance: HYDROXYCHLOROQUINE
  15. BUDESONIDE. [Concomitant]
     Active Substance: BUDESONIDE
  16. COREG [Concomitant]
     Active Substance: CARVEDILOL
  17. OMEGA-3                            /01866101/ [Concomitant]
     Active Substance: OMEGA-3 FATTY ACIDS
  18. RIVAROXABAN [Concomitant]
     Active Substance: RIVAROXABAN
  19. TRAMADOL. [Concomitant]
     Active Substance: TRAMADOL
  20. AZITHROMYCIN ANHYDROUS. [Concomitant]
     Active Substance: AZITHROMYCIN ANHYDROUS
  21. REMERON [Concomitant]
     Active Substance: MIRTAZAPINE
  22. CELLCEPT [Concomitant]
     Active Substance: MYCOPHENOLATE MOFETIL\MYCOPHENOLATE MOFETIL HYDROCHLORIDE

REACTIONS (1)
  - Limb operation [Unknown]

NARRATIVE: CASE EVENT DATE: 20161109
